FAERS Safety Report 8460915-4 (Version None)
Quarter: 2012Q2

REPORT INFORMATION
  Report Type: 
  Country: None (occurrence: None)
  Receive Date: 20120625
  Receipt Date: 20120614
  Transmission Date: 20120825
  Serious: Yes (Death)
  Sender: FDA-Public Use
  Company Number: BR-BIOGENIDEC-2012BI021870

PATIENT
  Sex: Female

DRUGS (1)
  1. TYSABRI [Suspect]
     Indication: MULTIPLE SCLEROSIS
     Route: 042
     Dates: start: 20120309, end: 20120409

REACTIONS (4)
  - ACUTE MYOCARDIAL INFARCTION [None]
  - URINARY TRACT INFECTION [None]
  - SYNCOPE [None]
  - BEDRIDDEN [None]
